FAERS Safety Report 12677339 (Version 1)
Quarter: 2016Q3

REPORT INFORMATION
  Report Type: Report from Study
  Country: US (occurrence: US)
  Receive Date: 20160823
  Receipt Date: 20160823
  Transmission Date: 20161109
  Serious: Yes (Death, Other)
  Sender: FDA-Public Use
  Company Number: US-GILEAD-2016-0230030

PATIENT
  Age: 67 Year
  Sex: Female

DRUGS (5)
  1. BUMEX [Concomitant]
     Active Substance: BUMETANIDE
  2. PROTONIX                           /00661201/ [Concomitant]
     Active Substance: OMEPRAZOLE
  3. ZOCOR [Concomitant]
     Active Substance: SIMVASTATIN
     Dosage: 5 UNK, UNK
  4. KCL [Concomitant]
     Active Substance: POTASSIUM CHLORIDE
  5. AMBRISENTAN [Suspect]
     Active Substance: AMBRISENTAN
     Indication: PRODUCT USED FOR UNKNOWN INDICATION
     Dosage: 10 MG, UNK
     Route: 065

REACTIONS (1)
  - Death [Fatal]

NARRATIVE: CASE EVENT DATE: 20160425
